FAERS Safety Report 7849753-0 (Version None)
Quarter: 2011Q4

REPORT INFORMATION
  Report Type: 
  Country: None (occurrence: None)
  Receive Date: 20111026
  Receipt Date: 20111017
  Transmission Date: 20120403
  Serious: Yes (Other)
  Sender: FDA-Public Use
  Company Number: US-US-EMD SERONO, INC.-7085856

PATIENT
  Sex: Female

DRUGS (25)
  1. COLACE [Concomitant]
  2. OXYCODONE HCL [Concomitant]
     Route: 048
  3. TYLENOL-500 [Concomitant]
     Route: 048
  4. LOVENOX [Concomitant]
  5. HEPARIN [Concomitant]
  6. PSYLLIUM [Concomitant]
     Route: 048
  7. FUROSEMIDE [Concomitant]
     Route: 048
  8. REBIF [Suspect]
     Indication: MULTIPLE SCLEROSIS
     Route: 058
     Dates: start: 20110826, end: 20110928
  9. NORVASC [Concomitant]
     Route: 048
  10. BISACODYL [Concomitant]
     Route: 054
  11. PROCHLORPERAZINE [Concomitant]
     Route: 048
  12. VITAMIN D [Concomitant]
     Route: 048
  13. LIORESAL [Concomitant]
     Route: 048
  14. MULTI-VITAMIN [Concomitant]
     Route: 048
  15. BACLOFEN [Concomitant]
     Route: 048
  16. AZILECT [Concomitant]
     Route: 048
  17. ASPIRIN [Concomitant]
  18. NEURONTIN [Concomitant]
     Route: 048
  19. PRILOSEC [Concomitant]
     Route: 048
  20. SENOKOT [Concomitant]
     Route: 048
  21. PRINIVIL [Concomitant]
     Route: 048
  22. CALCIUM CARBONATE [Concomitant]
     Route: 048
  23. ACETAMINOPHEN [Concomitant]
  24. COPAXONE [Concomitant]
     Route: 058
  25. LASIX [Concomitant]
     Route: 048

REACTIONS (3)
  - RESPIRATORY TRACT INFECTION [None]
  - INFLUENZA LIKE ILLNESS [None]
  - MUSCLE SPASMS [None]
